FAERS Safety Report 22332791 (Version 2)
Quarter: 2023Q2

REPORT INFORMATION
  Report Type: Spontaneous
  Country: GB (occurrence: None)
  Receive Date: 20230517
  Receipt Date: 20230612
  Transmission Date: 20230722
  Serious: Yes (Other)
  Sender: FDA-Public Use
  Company Number: 2023A111739

PATIENT
  Age: 49 Year
  Sex: Female
  Weight: 79 kg

DRUGS (2)
  1. BUDESONIDE [Suspect]
     Active Substance: BUDESONIDE
     Indication: Adverse drug reaction
     Dosage: 3MH
     Dates: start: 20230404, end: 20230405
  2. BUDESONIDE [Suspect]
     Active Substance: BUDESONIDE
     Indication: Crohn^s disease
     Dosage: 3MH
     Dates: start: 20230404, end: 20230405

REACTIONS (5)
  - Hypertension [Recovered/Resolved]
  - Blindness [Unknown]
  - Visual impairment [Unknown]
  - Headache [Unknown]
  - Medication error [Unknown]

NARRATIVE: CASE EVENT DATE: 20230505
